FAERS Safety Report 25269729 (Version 2)
Quarter: 2025Q2

REPORT INFORMATION
  Report Type: Spontaneous
  Country: FR (occurrence: FR)
  Receive Date: 20250505
  Receipt Date: 20250601
  Transmission Date: 20250717
  Serious: Yes (Life-Threatening, Other)
  Sender: GLAXOSMITHKLINE
  Company Number: FR-GLAXOSMITHKLINE INC-FR2025EME053677

PATIENT

DRUGS (1)
  1. BENLYSTA [Suspect]
     Active Substance: BELIMUMAB
     Indication: Product used for unknown indication
     Route: 058

REACTIONS (1)
  - Breast cancer [Not Recovered/Not Resolved]
